FAERS Safety Report 22755703 (Version 2)
Quarter: 2024Q1

REPORT INFORMATION
  Report Type: Spontaneous
  Country: US (occurrence: US)
  Receive Date: 20230727
  Receipt Date: 20240331
  Transmission Date: 20240409
  Serious: No
  Sender: FDA-Public Use
  Company Number: US-ABBVIE-5342347

PATIENT
  Sex: Female

DRUGS (1)
  1. KYBELLA [Suspect]
     Active Substance: DEOXYCHOLIC ACID
     Indication: Lipolysis procedure
     Dosage: TIME INTERVAL: AS NECESSARY: FORM STRENGTH: 10 MG/ML
     Route: 058
     Dates: start: 20220601, end: 20220601

REACTIONS (1)
  - Therapeutic product effect incomplete [Unknown]
